FAERS Safety Report 15612727 (Version 2)
Quarter: 2018Q4

REPORT INFORMATION
  Report Type: Spontaneous
  Country: US (occurrence: US)
  Receive Date: 20181113
  Receipt Date: 20181129
  Transmission Date: 20190205
  Serious: No
  Sender: FDA-Public Use
  Company Number: US-SUNOVION-2018SUN004377

PATIENT
  Sex: Female

DRUGS (1)
  1. LATUDA [Suspect]
     Active Substance: LURASIDONE HYDROCHLORIDE
     Indication: SCHIZOAFFECTIVE DISORDER
     Dosage: 40 MG, QD
     Route: 048
     Dates: start: 201811

REACTIONS (5)
  - Anxiety [Unknown]
  - Malaise [Unknown]
  - Schizoaffective disorder [Unknown]
  - Restlessness [Unknown]
  - Drug ineffective [Unknown]

NARRATIVE: CASE EVENT DATE: 201811
